FAERS Safety Report 22595265 (Version 1)
Quarter: 2023Q2

REPORT INFORMATION
  Report Type: Spontaneous
  Country: None (occurrence: US)
  Receive Date: 20230613
  Receipt Date: 20230613
  Transmission Date: 20230722
  Serious: Yes (Death)
  Sender: FDA-Public Use
  Company Number: US-Vero Biotech-2142649

PATIENT
  Age: 9 Month
  Sex: Female

DRUGS (2)
  1. GENOSYL [Suspect]
     Active Substance: NITRIC OXIDE
     Indication: Newborn persistent pulmonary hypertension
     Route: 055
     Dates: start: 20230529, end: 20230530
  2. GENOSYL [Suspect]
     Active Substance: NITRIC OXIDE

REACTIONS (2)
  - Cardio-respiratory arrest [Fatal]
  - Device issue [None]

NARRATIVE: CASE EVENT DATE: 20230529
